FAERS Safety Report 5418414-X (Version None)
Quarter: 2007Q3

REPORT INFORMATION
  Report Type: 
  Country: None (occurrence: None)
  Receive Date: 20070718
  Receipt Date: 20061204
  Transmission Date: 20080115
  Serious: Yes (Death)
  Sender: FDA-Public Use
  Company Number: 2006151369

PATIENT
  Sex: Female

DRUGS (2)
  1. CELEBREX [Suspect]
     Dates: start: 20030130, end: 20030929
  2. VIOXX [Suspect]
     Dates: start: 20010801, end: 20030929

REACTIONS (1)
  - MYOCARDIAL INFARCTION [None]
